FAERS Safety Report 18468802 (Version 1)
Quarter: 2020Q4

REPORT INFORMATION
  Report Type: Report from Study
  Country: CA (occurrence: CA)
  Receive Date: 20201105
  Receipt Date: 20201105
  Transmission Date: 20210114
  Serious: Yes (Death, Hospitalization)
  Sender: FDA-Public Use
  Company Number: CA-JNJFOC-20201050862

PATIENT
  Age: 52 Year
  Sex: Female
  Weight: 73 kg

DRUGS (1)
  1. REMICADE [Suspect]
     Active Substance: INFLIXIMAB
     Indication: CROHN^S DISEASE
     Route: 042
     Dates: start: 2006, end: 20201008

REACTIONS (7)
  - Death [Fatal]
  - Disseminated intravascular coagulation [Unknown]
  - Renal failure [Unknown]
  - Pneumonia [Unknown]
  - Respiratory failure [Unknown]
  - Sepsis [Unknown]
  - Delirium [Unknown]

NARRATIVE: CASE EVENT DATE: 20201026
